FAERS Safety Report 5056318-5 (Version None)
Quarter: 2006Q3

REPORT INFORMATION
  Report Type: 
  Country: None (occurrence: None)
  Receive Date: 20060717
  Receipt Date: 20060711
  Transmission Date: 20061208
  Serious: Yes (Hospitalization, Other)
  Sender: FDA-Public Use
  Company Number: DEWYE828827JUN06

PATIENT
  Age: 14 Year
  Sex: Male

DRUGS (6)
  1. VENLAFAXINE HCL [Suspect]
     Dosage: UNKNOWN OVERDOSE AMOUNT
     Route: 048
     Dates: start: 20060626, end: 20060626
  2. METHADONE HCL [Suspect]
     Dosage: UNKNOWN OVERDOSE AMOUNT
     Dates: start: 20060626, end: 20060626
  3. MIRTAZAPINE [Suspect]
     Dosage: UNKNOWN OVERDOSE AMOUNT
     Route: 048
     Dates: start: 20060626, end: 20060626
  4. OPIOIDS (OPIOIDS) [Suspect]
     Dosage: UNKNOWN OVERDOSE AMOUNT
     Dates: start: 20060626, end: 20060626
  5. TAXILAN (PERAZINE) [Suspect]
     Dosage: 30 TABLETS (OVERDOSE AMOUNT UNKNOWN)
     Route: 048
     Dates: start: 20060626, end: 20060626
  6. ZOPICLONE (ZOPICLONE) [Suspect]
     Dosage: UNKNOWN OVERDOSE AMOUNT
     Route: 048
     Dates: start: 20060626, end: 20060626

REACTIONS (3)
  - EXTRAPYRAMIDAL DISORDER [None]
  - OVERDOSE [None]
  - SOMNOLENCE [None]
